FAERS Safety Report 10407902 (Version 1)
Quarter: 2014Q1

REPORT INFORMATION
  Report Type: Spontaneous
  Country: US (occurrence: None)
  Receive Date: 20130116
  Receipt Date: 20130116
  Transmission Date: 20141002
  Serious: No
  Sender: FDA-Public Use
  Company Number: 330865H

PATIENT
  Age: 32 Year
  Sex: Female

DRUGS (1)
  1. HEPARIN SODIUM [Suspect]
     Indication: THERAPEUTIC PROCEDURE
     Dosage: OTHER
     Dates: start: 20090713, end: 20090713

REACTIONS (1)
  - Anaphylactic reaction [None]
